FAERS Safety Report 8124404-9 (Version None)
Quarter: 2012Q1

REPORT INFORMATION
  Report Type: 
  Country: None (occurrence: None)
  Receive Date: 20120209
  Receipt Date: 20120131
  Transmission Date: 20120608
  Serious: Yes (Hospitalization)
  Sender: FDA-Public Use
  Company Number: FR-SANOFI-AVENTIS-2012SA006398

PATIENT
  Age: 42 Year
  Sex: Female

DRUGS (2)
  1. PREVISCAN [Suspect]
     Route: 048
     Dates: start: 19970101
  2. PLAQUENIL [Suspect]
     Indication: ARTHRALGIA
     Route: 065
     Dates: start: 20070101, end: 20110401

REACTIONS (1)
  - CHRONIC HEPATITIS [None]
